FAERS Safety Report 16153598 (Version 1)
Quarter: 2019Q2

REPORT INFORMATION
  Report Type: Spontaneous
  Country: US (occurrence: US)
  Receive Date: 20190403
  Receipt Date: 20190403
  Transmission Date: 20190711
  Serious: Yes (Other)
  Sender: FDA-Public Use
  Company Number: US-PFIZER INC-2019142232

PATIENT
  Sex: Female

DRUGS (1)
  1. PREMPRO [Suspect]
     Active Substance: ESTROGENS, CONJUGATED\MEDROXYPROGESTERONE ACETATE
     Dosage: AS DIRECTED
     Dates: start: 201802

REACTIONS (3)
  - Feeling abnormal [Unknown]
  - Pemphigus [Unknown]
  - Alopecia [Unknown]

NARRATIVE: CASE EVENT DATE: 20180327
